FAERS Safety Report 7114289-1 (Version None)
Quarter: 2010Q4

REPORT INFORMATION
  Report Type: 
  Country: None (occurrence: None)
  Receive Date: 20101119
  Receipt Date: 20101115
  Transmission Date: 20110411
  Serious: Yes (Other)
  Sender: FDA-Public Use
  Company Number: CHPA2010US17671

PATIENT
  Age: 48 Year
  Sex: Male
  Weight: 83.9 kg

DRUGS (2)
  1. CONTROL PLP (NCH) [Suspect]
     Indication: SMOKING CESSATION THERAPY
     Dosage: 14 MG, QD
     Route: 062
     Dates: start: 20100501, end: 20100101
  2. PRIVATE LABEL (NCH) [Suspect]
     Indication: SMOKING CESSATION THERAPY
     Dosage: 7 MG, QD
     Route: 062
     Dates: start: 20100101, end: 20100101

REACTIONS (2)
  - INAPPROPRIATE SCHEDULE OF DRUG ADMINISTRATION [None]
  - MYOCARDIAL INFARCTION [None]
